FAERS Safety Report 19252320 (Version 1)
Quarter: 2021Q2

REPORT INFORMATION
  Report Type: Spontaneous
  Country: US (occurrence: US)
  Receive Date: 20210512
  Receipt Date: 20210512
  Transmission Date: 20210717
  Serious: No
  Sender: FDA-Public Use
  Company Number: None

PATIENT
  Age: 74 Year
  Sex: Male
  Weight: 147.42 kg

DRUGS (6)
  1. COSENTYX [Suspect]
     Active Substance: SECUKINUMAB
     Indication: PSORIASIS
     Dosage: ?          OTHER DOSE:300MG (2 PENS);??FREQUENCY: EVERY WEEK FOR 5 WEEKS?
     Route: 058
     Dates: start: 202102
  2. COSENTYX [Suspect]
     Active Substance: SECUKINUMAB
     Indication: POLYARTHRITIS
  3. OTEZLA [Suspect]
     Active Substance: APREMILAST
  4. COSENTYX [Suspect]
     Active Substance: SECUKINUMAB
     Indication: POLYARTHRITIS
     Dosage: ?          OTHER DOSE:300MG (2 PENS);??FREQUENCY: EVERY WEEK FOR 5 WEEKS?
     Route: 058
     Dates: start: 202102
  5. COSENTYX [Suspect]
     Active Substance: SECUKINUMAB
     Indication: PSORIATIC ARTHROPATHY
  6. COSENTYX [Suspect]
     Active Substance: SECUKINUMAB
     Indication: PSORIATIC ARTHROPATHY
     Dosage: ?          OTHER DOSE:300MG (2 PENS);??FREQUENCY: EVERY WEEK FOR 5 WEEKS?
     Route: 058
     Dates: start: 202102

REACTIONS (1)
  - Hospitalisation [None]
